FAERS Safety Report 6962252-3 (Version None)
Quarter: 2010Q3

REPORT INFORMATION
  Report Type: 
  Country: None (occurrence: None)
  Receive Date: 20100902
  Receipt Date: 20100827
  Transmission Date: 20110219
  Serious: Yes (Other)
  Sender: FDA-Public Use
  Company Number: US-ASTRAZENECA-2008UW04626

PATIENT
  Age: 26 Year
  Sex: Male
  Weight: 153.3 kg

DRUGS (18)
  1. SEROQUEL [Suspect]
     Indication: SCHIZOPHRENIA
     Route: 048
     Dates: start: 19990101, end: 20060201
  2. SEROQUEL [Suspect]
     Indication: SLEEP DISORDER
     Route: 048
     Dates: start: 19990101, end: 20060201
  3. SEROQUEL [Suspect]
     Dosage: 100 - 300 MG
     Route: 048
     Dates: start: 20020329
  4. SEROQUEL [Suspect]
     Dosage: 100 - 300 MG
     Route: 048
     Dates: start: 20020329
  5. GEODON [Concomitant]
     Dates: start: 20050101
  6. COGENTIN [Concomitant]
  7. DEPLETITE [Concomitant]
  8. RESTORIL [Concomitant]
  9. ZOLOFT [Concomitant]
  10. RISPERDAL [Concomitant]
     Indication: SCHIZOPHRENIA
     Dates: start: 20020101, end: 20020101
  11. ZYPREXA [Concomitant]
     Indication: SCHIZOPHRENIA
     Dates: start: 19960101
  12. ABILIFY [Concomitant]
  13. ZOCOR [Concomitant]
  14. LISINOPRIL [Concomitant]
  15. PRISCOLINE [Concomitant]
  16. NOVOLIN 70/30 [Concomitant]
  17. NAFTIN [Concomitant]
  18. HALDOL [Concomitant]
     Dates: start: 19930101

REACTIONS (8)
  - BLOOD CHOLESTEROL INCREASED [None]
  - DIABETIC COMPLICATION [None]
  - FURUNCLE [None]
  - GLYCOSURIA [None]
  - HYPERGLYCAEMIA [None]
  - HYPERLIPIDAEMIA [None]
  - OBESITY [None]
  - TYPE 2 DIABETES MELLITUS [None]
